FAERS Safety Report 14628548 (Version 4)
Quarter: 2020Q1

REPORT INFORMATION
  Report Type: Report from Study
  Country: None (occurrence: US)
  Receive Date: 20180313
  Receipt Date: 20200212
  Transmission Date: 20200409
  Serious: Yes (Other)
  Sender: FDA-Public Use
  Company Number: US-ABBVIE-18K-163-2242865-00

PATIENT
  Sex: Male
  Weight: 54.48 kg

DRUGS (2)
  1. HUMIRA [Suspect]
     Active Substance: ADALIMUMAB
     Indication: CROHN^S DISEASE
     Route: 058
  2. HUMIRA [Suspect]
     Active Substance: ADALIMUMAB
     Route: 058

REACTIONS (5)
  - Suture related complication [Recovering/Resolving]
  - Crohn^s disease [Recovering/Resolving]
  - Therapeutic response shortened [Recovering/Resolving]
  - Diarrhoea [Recovering/Resolving]
  - Gastrointestinal inflammation [Recovered/Resolved]
